FAERS Safety Report 25905766 (Version 1)
Quarter: 2025Q4

REPORT INFORMATION
  Report Type: Spontaneous
  Country: US (occurrence: US)
  Receive Date: 20251010
  Receipt Date: 20251010
  Transmission Date: 20260119
  Serious: No
  Sender: ALVOGEN
  Company Number: US-ALVOGEN-2025097917

PATIENT
  Age: 83 Year

DRUGS (1)
  1. LORAZEPAM [Suspect]
     Active Substance: LORAZEPAM
     Indication: Product used for unknown indication
     Dosage: 2MIL A DAY

REACTIONS (1)
  - Psychomotor hyperactivity [Unknown]
